FAERS Safety Report 4507818-5 (Version None)
Quarter: 2004Q4

REPORT INFORMATION
  Report Type: 
  Country: None (occurrence: None)
  Receive Date: 20041018
  Receipt Date: 20040819
  Transmission Date: 20050328
  Serious: No
  Sender: FDA-Public Use
  Company Number: 208599

PATIENT
  Age: 47 Year
  Sex: Male

DRUGS (5)
  1. XOLAIR [Suspect]
     Indication: ASTHMA
     Dosage: 225 MG Q2W, SUBCUTANEOUS
     Route: 058
     Dates: start: 20040628
  2. STEROIDS (STEROID NOS) [Concomitant]
  3. SINGULAIR [Concomitant]
  4. INHALED CORTICOSTEROID (CORTICOSTEROID NOS) [Concomitant]
  5. BETA BLOCKER (BETA BLOCKERS NOS) [Concomitant]

REACTIONS (2)
  - NIPPLE PAIN [None]
  - PRURITUS [None]
